FAERS Safety Report 11724085 (Version 2)
Quarter: 2015Q4

REPORT INFORMATION
  Report Type: Spontaneous
  Country: FR (occurrence: FR)
  Receive Date: 20151111
  Receipt Date: 20151207
  Transmission Date: 20160304
  Serious: Yes (Other)
  Sender: FDA-Public Use
  Company Number: FR-EMD SERONO-8051681

PATIENT
  Age: 34 Year
  Sex: Female
  Weight: 56 kg

DRUGS (2)
  1. REBIF [Suspect]
     Active Substance: INTERFERON BETA-1A
     Dates: start: 201504
  2. REBIF [Suspect]
     Active Substance: INTERFERON BETA-1A
     Indication: MULTIPLE SCLEROSIS
     Dosage: TITRATION DOSE
     Dates: start: 201503

REACTIONS (2)
  - Maternal exposure during pregnancy [Recovered/Resolved]
  - Ectopic pregnancy [Recovered/Resolved]

NARRATIVE: CASE EVENT DATE: 201507
